FAERS Safety Report 7828093-X (Version None)
Quarter: 2011Q4

REPORT INFORMATION
  Report Type: 
  Country: None (occurrence: None)
  Receive Date: 20111020
  Receipt Date: 20111011
  Transmission Date: 20120403
  Serious: Yes (Hospitalization)
  Sender: FDA-Public Use
  Company Number: US-BAXTER-2011BH031884

PATIENT
  Age: 65 Year
  Sex: Female
  Weight: 79 kg

DRUGS (9)
  1. INSULIN [Concomitant]
     Indication: TYPE 1 DIABETES MELLITUS
     Route: 065
  2. DEMEROL [Concomitant]
     Indication: PAIN PROPHYLAXIS
     Route: 065
  3. PREDNISONE [Concomitant]
     Indication: PREMEDICATION
     Route: 042
     Dates: start: 20111006, end: 20111006
  4. CORTICOSTEROIDS [Concomitant]
     Indication: ARTERITIS
     Route: 065
  5. METHOTREXATE [Concomitant]
     Indication: ARTERITIS
     Route: 065
  6. DIURETICS [Concomitant]
     Indication: PRODUCT USED FOR UNKNOWN INDICATION
     Route: 065
  7. GAMMAGARD LIQUID [Suspect]
     Indication: HYPOGAMMAGLOBULINAEMIA
     Route: 042
     Dates: start: 20111006, end: 20111006
  8. BENADRYL [Concomitant]
     Indication: PREMEDICATION
     Route: 042
     Dates: start: 20111006, end: 20111006
  9. CARDIAC THERAPY [Concomitant]
     Indication: CARDIOVASCULAR EVENT PROPHYLAXIS
     Route: 065

REACTIONS (9)
  - FEELING COLD [None]
  - DIZZINESS [None]
  - OEDEMA PERIPHERAL [None]
  - CHILLS [None]
  - PAIN [None]
  - NAUSEA [None]
  - THROMBOSIS [None]
  - DYSPNOEA [None]
  - SKIN DISCOLOURATION [None]
